FAERS Safety Report 8719657 (Version 2)
Quarter: 2012Q4

REPORT INFORMATION
  Report Type: 
  Country: US (occurrence: US)
  Receive Date: 20120813
  Receipt Date: 20120828
  Transmission Date: 20130627
  Serious: Yes (Other)
  Sender: FDA-Public Use
  Company Number: US-PFIZER INC-2012196028

PATIENT
  Age: 52 Year
  Sex: Female
  Weight: 62.13 kg

DRUGS (10)
  1. CHANTIX [Suspect]
     Indication: SMOKING CESSATION THERAPY
     Dosage: 0.5 mg, daily
     Route: 048
     Dates: start: 20120718, end: 2012
  2. CHANTIX [Suspect]
     Indication: NICOTINE DEPENDENCE
     Dosage: 1 mg, 2x/day
     Route: 048
     Dates: start: 2012
  3. ZANTAC [Concomitant]
     Dosage: 150 mg, 2x/day
     Route: 048
     Dates: start: 20120517
  4. PRAVASTATIN [Concomitant]
     Indication: BLOOD CHOLESTEROL ABNORMAL
     Dosage: 40 mg, once daily at bedtime
     Route: 048
     Dates: start: 20120703
  5. LISINOPRIL [Concomitant]
     Indication: BLOOD PRESSURE ABNORMAL
     Dosage: 10 mg,daily
     Route: 048
     Dates: start: 20120703
  6. CITALOPRAM [Concomitant]
     Dosage: 20 mg, 1x/day
     Route: 048
  7. LANTUS SOLUTION [Concomitant]
     Dosage: 40 unit, 1x/day
     Route: 058
     Dates: start: 20120614
  8. ASPIRIN, BUFFERED [Concomitant]
     Dosage: 81 mg, 1x/day
     Route: 048
     Dates: start: 20120517
  9. QUETIAPINE [Concomitant]
     Dosage: 100 mg, 2x/day
     Route: 048
     Dates: start: 20120517
  10. ALBUTEROL CFC [Concomitant]
     Indication: WHEEZING
     Dosage: 90 mcg/inhaler, 2 puffs inhaled 4 times a day, PRN (as needed for wheezing)
     Route: 055
     Dates: start: 20120309

REACTIONS (3)
  - Mood swings [Not Recovered/Not Resolved]
  - Depression [Not Recovered/Not Resolved]
  - Mental disorder [Unknown]
